FAERS Safety Report 6557152-7 (Version None)
Quarter: 2010Q1

REPORT INFORMATION
  Report Type: 
  Country: None (occurrence: None)
  Receive Date: 20100126
  Receipt Date: 20100112
  Transmission Date: 20100710
  Serious: Yes (Hospitalization)
  Sender: FDA-Public Use
  Company Number: 004871

PATIENT
  Age: 9 Year
  Sex: Male

DRUGS (9)
  1. LEVETIRACETAM [Suspect]
     Dosage: 60MG/KG VIA NASOGASTRIC TUBE OTHER, 40MG/KG VIA NASOGASTRIC TUBE OTHER
  2. LORAZEPAM [Concomitant]
  3. FOSPHENYTOIN [Concomitant]
  4. PHENOBARBITAL TAB [Concomitant]
  5. MIDAZOLAM HCL [Concomitant]
  6. ACETAZOLAMIDE [Concomitant]
  7. VALPROIC ACID [Concomitant]
  8. PENTOBARBITAL CAP [Concomitant]
  9. DIAZEPAM [Concomitant]

REACTIONS (1)
  - NO THERAPEUTIC RESPONSE [None]
